FAERS Safety Report 14734131 (Version 1)
Quarter: 2018Q2

REPORT INFORMATION
  Report Type: Spontaneous
  Country: US (occurrence: US)
  Receive Date: 20180409
  Receipt Date: 20180409
  Transmission Date: 20180711
  Serious: No
  Sender: FDA-Public Use
  Company Number: US-009507513-1804USA000037

PATIENT
  Age: 80 Year
  Sex: Female

DRUGS (12)
  1. SERTRALINE HYDROCHLORIDE. [Concomitant]
     Active Substance: SERTRALINE HYDROCHLORIDE
  2. FLECAINIDE [Concomitant]
     Active Substance: FLECAINIDE
  3. METFORMIN [Concomitant]
     Active Substance: METFORMIN HYDROCHLORIDE
  4. ELIQUIS [Concomitant]
     Active Substance: APIXABAN
  5. GABAPENTIN. [Concomitant]
     Active Substance: GABAPENTIN
  6. HYDROCODONE [Concomitant]
     Active Substance: HYDROCODONE
  7. LOSARTAN. [Concomitant]
     Active Substance: LOSARTAN
  8. CLOTRIMAZOLE. [Concomitant]
     Active Substance: CLOTRIMAZOLE
  9. VOLTAREN [Concomitant]
     Active Substance: DICLOFENAC SODIUM
  10. JANUVIA [Suspect]
     Active Substance: SITAGLIPTIN PHOSPHATE
     Dosage: UNK
     Route: 048
  11. NEXIUM I.V. [Concomitant]
     Active Substance: ESOMEPRAZOLE SODIUM
  12. OMEPRAZOLE. [Concomitant]
     Active Substance: OMEPRAZOLE

REACTIONS (1)
  - Pain [Not Recovered/Not Resolved]
